FAERS Safety Report 6755953-3 (Version None)
Quarter: 2010Q2

REPORT INFORMATION
  Report Type: 
  Country: None (occurrence: None)
  Receive Date: 20100604
  Receipt Date: 20100521
  Transmission Date: 20101027
  Serious: Yes (Hospitalization, Other)
  Sender: FDA-Public Use
  Company Number: PHHY2010JP18327

PATIENT
  Sex: Female
  Weight: 46 kg

DRUGS (11)
  1. NEORAL [Suspect]
     Indication: APLASTIC ANAEMIA
     Dosage: 125 MG, BID
     Route: 048
     Dates: start: 20090828
  2. THYMOGLOBULIN [Concomitant]
     Indication: APLASTIC ANAEMIA
     Dosage: 175 MG
     Route: 041
     Dates: start: 20090825, end: 20090829
  3. CIPROFLOXACIN HCL [Concomitant]
     Indication: ANTIFUNGAL PROPHYLAXIS
     Dosage: 400 MG
     Route: 048
     Dates: start: 20090825, end: 20090909
  4. DIFLUCAN [Concomitant]
     Indication: ANTIFUNGAL PROPHYLAXIS
     Dosage: 200 MG
     Route: 048
     Dates: start: 20090825, end: 20090909
  5. ZOVIRAX [Concomitant]
     Indication: ANTIVIRAL PROPHYLAXIS
     Dosage: 200 MG
     Route: 048
     Dates: start: 20090825, end: 20090909
  6. GRANULOCYTE COLONY STIMULATING FACTOR [Concomitant]
  7. MUCOSTA [Concomitant]
     Dosage: 300 MG
     Route: 048
     Dates: start: 20090825, end: 20090909
  8. PREDNISOLONE [Concomitant]
     Indication: APLASTIC ANAEMIA
     Dosage: 50 MG
     Route: 048
     Dates: start: 20090825, end: 20090918
  9. PREDNISOLONE [Concomitant]
     Dosage: 25 MG
     Route: 048
  10. PREDNISOLONE [Concomitant]
     Dosage: 10 MG
     Route: 048
  11. CEFEPIME HYDROCHLORIDE [Concomitant]
     Dosage: 4 G
     Dates: start: 20090828

REACTIONS (16)
  - ABDOMINAL PAIN [None]
  - BACILLUS INFECTION [None]
  - BACK PAIN [None]
  - BRAIN ABSCESS [None]
  - CONVULSION [None]
  - ENTEROCOLITIS [None]
  - GASTRITIS ATROPHIC [None]
  - LIVER DISORDER [None]
  - LOSS OF CONSCIOUSNESS [None]
  - LYMPH NODE PALPABLE [None]
  - LYMPHADENOPATHY [None]
  - OEDEMA MUCOSAL [None]
  - PURPURA [None]
  - PYREXIA [None]
  - RED BLOOD CELL COUNT DECREASED [None]
  - WHITE BLOOD CELL COUNT DECREASED [None]
